FAERS Safety Report 24590871 (Version 1)
Quarter: 2024Q4

REPORT INFORMATION
  Report Type: Spontaneous
  Country: ES (occurrence: None)
  Receive Date: 20241107
  Receipt Date: 20241107
  Transmission Date: 20250115
  Serious: Yes (Death)
  Sender: UNICHEM
  Company Number: ES-Unichem Pharmaceuticals (USA) Inc-UCM202411-001453

PATIENT
  Age: 67 Year
  Sex: Male

DRUGS (5)
  1. AMLODIPINE [Suspect]
     Active Substance: AMLODIPINE BESYLATE
     Indication: Squamous cell carcinoma
     Dosage: UNKNOWN
  2. FUROSEMIDE [Suspect]
     Active Substance: FUROSEMIDE
     Indication: Squamous cell carcinoma
     Dosage: UNKNOWN
  3. ACETAZOLAMIDE [Suspect]
     Active Substance: ACETAZOLAMIDE
     Indication: Squamous cell carcinoma
     Dosage: UNKNOWN
  4. DEXAMETHASONE [Suspect]
     Active Substance: DEXAMETHASONE
     Indication: Squamous cell carcinoma
     Dosage: UNKNOWN
  5. MANNITOL [Suspect]
     Active Substance: MANNITOL
     Indication: Squamous cell carcinoma
     Dosage: UNKNOWN

REACTIONS (5)
  - Blood pressure fluctuation [Fatal]
  - Lymphoedema [Fatal]
  - Hyperglycaemia [Fatal]
  - Hyponatraemia [Unknown]
  - Product use in unapproved indication [Unknown]
